FAERS Safety Report 14450088 (Version 3)
Quarter: 2018Q2

REPORT INFORMATION
  Report Type: Report from Study
  Country: None (occurrence: US)
  Receive Date: 20180129
  Receipt Date: 20180403
  Transmission Date: 20180711
  Serious: Yes (Hospitalization, Other)
  Sender: FDA-Public Use
  Company Number: US-ABBVIE-17K-163-1971422-00

PATIENT
  Age: 49 Year
  Sex: Female
  Weight: 69.92 kg

DRUGS (48)
  1. LEXAPRO [Concomitant]
     Active Substance: ESCITALOPRAM OXALATE
     Indication: DEPRESSION
  2. ROPINIROLE. [Concomitant]
     Active Substance: ROPINIROLE
     Indication: RESTLESS LEGS SYNDROME
     Dosage: AT BED TIME
  3. CHOLESTYRAMINE. [Concomitant]
     Active Substance: CHOLESTYRAMINE
     Indication: IRRITABLE BOWEL SYNDROME
     Dosage: ONE SCOOP 4 TIMES PER DAY AS NEEDED
  4. VITAMIN B12 [Concomitant]
     Active Substance: CYANOCOBALAMIN
     Indication: RESTLESS LEGS SYNDROME
  5. BIOTIN [Concomitant]
     Active Substance: BIOTIN
     Indication: ALOPECIA
  6. DEPO-MEDROL [Concomitant]
     Active Substance: METHYLPREDNISOLONE ACETATE
     Dates: start: 20171031
  7. VOLTAREN [Concomitant]
     Active Substance: DICLOFENAC SODIUM
     Indication: RHEUMATOID ARTHRITIS
     Route: 061
  8. AZELASTINE. [Concomitant]
     Active Substance: AZELASTINE HYDROCHLORIDE
     Indication: HYPERSENSITIVITY
  9. VISTARIL [Concomitant]
     Active Substance: HYDROXYZINE PAMOATE
     Indication: ANXIETY
  10. PHENERGAN [Concomitant]
     Active Substance: PROMETHAZINE HYDROCHLORIDE
     Indication: NAUSEA
     Dosage: EVERY 6 HOURS AS NEEDED
  11. DEPO-MEDROL [Concomitant]
     Active Substance: METHYLPREDNISOLONE ACETATE
     Indication: RHEUMATOID ARTHRITIS
     Dates: start: 20170505
  12. DEPO-MEDROL [Concomitant]
     Active Substance: METHYLPREDNISOLONE ACETATE
     Dates: start: 20170717
  13. LIDOCAINE. [Concomitant]
     Active Substance: LIDOCAINE
     Indication: PULMONARY PAIN
  14. BENZONATATE. [Concomitant]
     Active Substance: BENZONATATE
     Indication: COUGH
     Dosage: EVERY 6 HOURS AS NEEDED
  15. BUSPAR [Concomitant]
     Active Substance: BUSPIRONE HYDROCHLORIDE
     Indication: ANXIETY
     Dosage: TWICE A DAY 1.5 PILL
  16. PROAIR HFA [Concomitant]
     Active Substance: ALBUTEROL SULFATE
     Indication: ASTHMA
  17. HUMIRA [Suspect]
     Active Substance: ADALIMUMAB
     Indication: RHEUMATOID ARTHRITIS
     Route: 058
  18. CYMBALTA [Concomitant]
     Active Substance: DULOXETINE HYDROCHLORIDE
     Indication: PAIN
  19. CYMBALTA [Concomitant]
     Active Substance: DULOXETINE HYDROCHLORIDE
     Indication: DEPRESSION
  20. LEXAPRO [Concomitant]
     Active Substance: ESCITALOPRAM OXALATE
     Indication: PAIN
  21. MUCUS RELIEF [Concomitant]
     Active Substance: GUAIFENESIN
     Indication: PRODUCT USED FOR UNKNOWN INDICATION
  22. HYDROMORPHONE [Concomitant]
     Active Substance: HYDROMORPHONE
     Indication: PAIN
  23. CLIDAMYCIN PHOSPHATE [Concomitant]
     Indication: ACNE
  24. SINGULAIR [Concomitant]
     Active Substance: MONTELUKAST SODIUM
     Indication: ASTHMA
     Dosage: 1 TABLET A BED TIME
  25. ATIVAN [Concomitant]
     Active Substance: LORAZEPAM
     Indication: SLEEP DISORDER THERAPY
     Dosage: AT BED TIME
  26. ELIQUIS [Concomitant]
     Active Substance: APIXABAN
     Indication: ANTICOAGULANT THERAPY
  27. FLONASE [Concomitant]
     Active Substance: FLUTICASONE PROPIONATE
     Indication: HYPERSENSITIVITY
  28. ZYRTEC [Concomitant]
     Active Substance: CETIRIZINE HYDROCHLORIDE
     Indication: HYPERSENSITIVITY
  29. EUFLEXXA [Concomitant]
     Active Substance: HYALURONATE SODIUM
     Indication: RHEUMATOID ARTHRITIS
     Dates: start: 20161017
  30. VYVANSE [Concomitant]
     Active Substance: LISDEXAMFETAMINE DIMESYLATE
     Indication: DEPRESSION
  31. SIMVASTATIN. [Concomitant]
     Active Substance: SIMVASTATIN
     Indication: DYSLIPIDAEMIA
  32. CLOBETASOL PROPIONATE. [Concomitant]
     Active Substance: CLOBETASOL PROPIONATE
     Indication: PSORIASIS
  33. URIBEL [Concomitant]
     Active Substance: HYOSCYAMINE SULFATE\METHENAMINE\METHYLENE BLUE\PHENYL SALICYLATE\SODIUM PHOSPHATE, MONOBASIC, MONOHYDRATE
     Indication: NEPHROLITHIASIS
     Dosage: ONCE EVERY 8 HOURS
  34. FLUCONAZOLE. [Concomitant]
     Active Substance: FLUCONAZOLE
     Indication: VULVOVAGINAL PRURITUS
  35. EUFLEXXA [Concomitant]
     Active Substance: HYALURONATE SODIUM
     Dates: start: 20161024
  36. HORIZANT [Concomitant]
     Active Substance: GABAPENTIN ENACARBIL
     Indication: NEUROPATHY PERIPHERAL
  37. SYMBICORT [Concomitant]
     Active Substance: BUDESONIDE\FORMOTEROL FUMARATE DIHYDRATE
     Indication: ASTHMA
     Dosage: 80.5/4.5
  38. LIDOCAINE. [Concomitant]
     Active Substance: LIDOCAINE
     Indication: HERPES ZOSTER
     Dosage: 3 PATCHES PER DAY
  39. LORATADINE. [Concomitant]
     Active Substance: LORATADINE
     Indication: VULVOVAGINAL PRURITUS
     Dosage: 1/2 TABLETS FOR 10 DAYS
  40. VITAMIN D3 [Concomitant]
     Active Substance: CHOLECALCIFEROL
     Indication: PRODUCT USED FOR UNKNOWN INDICATION
     Dosage: 2000
  41. IMODIUM [Concomitant]
     Active Substance: LOPERAMIDE HYDROCHLORIDE
     Indication: DIARRHOEA
  42. EUFLEXXA [Concomitant]
     Active Substance: HYALURONATE SODIUM
     Dates: start: 20161031
  43. SYNVISC-ONE [Concomitant]
     Active Substance: HYALURONATE SODIUM
     Indication: RHEUMATOID ARTHRITIS
     Dates: start: 201709
  44. DEPO-MEDROL [Concomitant]
     Active Substance: METHYLPREDNISOLONE ACETATE
     Dates: start: 20170721
  45. HUMIRA [Suspect]
     Active Substance: ADALIMUMAB
     Indication: PSORIATIC ARTHROPATHY
     Route: 058
     Dates: start: 20161020
  46. ACYCLOVIR. [Concomitant]
     Active Substance: ACYCLOVIR
     Indication: HERPES ZOSTER
  47. RESTASIS [Concomitant]
     Active Substance: CYCLOSPORINE
     Indication: DRY EYE
     Dosage: 30S- 1 DROP TWICE DAILY
  48. SYSTANE (HYPROMELLOSE 2910 (4000 MPA.S)) [Concomitant]
     Active Substance: HYPROMELLOSE 2910 (4000 MPA.S)
     Indication: DRY EYE

REACTIONS (8)
  - Device related thrombosis [Not Recovered/Not Resolved]
  - Device related infection [Unknown]
  - Nephrolithiasis [Not Recovered/Not Resolved]
  - Ureterolithiasis [Recovered/Resolved]
  - Urosepsis [Recovering/Resolving]
  - Arthralgia [Not Recovered/Not Resolved]
  - Injection site bruising [Recovering/Resolving]
  - Back pain [Not Recovered/Not Resolved]

NARRATIVE: CASE EVENT DATE: 20170504
